FAERS Safety Report 4736903-8 (Version None)
Quarter: 2005Q3

REPORT INFORMATION
  Report Type: 
  Country: None (occurrence: None)
  Receive Date: 20050803
  Receipt Date: 20050722
  Transmission Date: 20060218
  Serious: Yes (Death, Life-Threatening, Hospitalization)
  Sender: FDA-Public Use
  Company Number: HQWYE644011MAY05

PATIENT
  Age: 51 Year
  Sex: Female
  Weight: 54.93 kg

DRUGS (10)
  1. EFFEXOR XR [Suspect]
     Indication: DEPRESSION
     Dosage: 150 MG 1X PER 1 DAY ORAL
     Route: 048
     Dates: start: 20040423
  2. ALCOHOL (ETHANOL) [Suspect]
  3. FOSAMAX [Concomitant]
  4. PROTONIX [Concomitant]
  5. CELEBREX [Concomitant]
  6. DIOVAN HCT [Concomitant]
  7. PREDNISONE [Concomitant]
  8. FOLIC ACID [Concomitant]
  9. B COMPLEX (NICOTINAMIDE/PYRIDOXINE HYDROCHLORIDE/RIBOFLAVIN/THIAMINE H [Concomitant]
  10. VITAMIN B12 [Concomitant]

REACTIONS (6)
  - ALCOHOL USE [None]
  - BIOPSY STOMACH ABNORMAL [None]
  - BLOOD POTASSIUM INCREASED [None]
  - BLOOD UREA INCREASED [None]
  - CARDIAC ARREST [None]
  - GASTRITIS HAEMORRHAGIC [None]
